FAERS Safety Report 24594621 (Version 1)
Quarter: 2024Q4

REPORT INFORMATION
  Report Type: Spontaneous
  Country: BR (occurrence: BR)
  Receive Date: 20241108
  Receipt Date: 20241108
  Transmission Date: 20250115
  Serious: Yes (Other)
  Sender: BAYER HEALTHCARE PHARMACEUTICALS INC.
  Company Number: BR-BAYER-2024A065231

PATIENT
  Age: 50 Year
  Sex: Male

DRUGS (2)
  1. STIVARGA [Suspect]
     Active Substance: REGORAFENIB MONOHYDRATE
     Indication: Gastrointestinal carcinoma
     Dosage: FOR 21 DAYS AND 7 DAYS BREAK (SECOND CYCLE)
  2. STIVARGA [Suspect]
     Active Substance: REGORAFENIB MONOHYDRATE
     Indication: Gastrointestinal carcinoma
     Dosage: 160 MG, QD(SIX-MONTH CYCLE)
     Dates: end: 20240929

REACTIONS (4)
  - Burns third degree [None]
  - Burning sensation [Not Recovered/Not Resolved]
  - Tongue discomfort [Not Recovered/Not Resolved]
  - Abdominal pain [None]
